FAERS Safety Report 6714083-7 (Version None)
Quarter: 2010Q2

REPORT INFORMATION
  Report Type: 
  Country: None (occurrence: None)
  Receive Date: 20100506
  Receipt Date: 20100428
  Transmission Date: 20101027
  Serious: Yes (Other)
  Sender: FDA-Public Use
  Company Number: AU-WYE-G06048810

PATIENT
  Sex: Male

DRUGS (1)
  1. BENEFIX [Suspect]

REACTIONS (2)
  - ACNE [None]
  - LYMPHADENOPATHY [None]
